FAERS Safety Report 24211608 (Version 4)
Quarter: 2025Q4

REPORT INFORMATION
  Report Type: Spontaneous
  Country: EU (occurrence: EU)
  Receive Date: 20240814
  Receipt Date: 20251001
  Transmission Date: 20260118
  Serious: Yes (Other)
  Sender: MYLAN
  Company Number: EU-GLPHARMA-24.0938

PATIENT
  Age: 10 Year
  Sex: Female

DRUGS (9)
  1. SORAFENIB [Suspect]
     Active Substance: SORAFENIB
     Indication: Acute leukaemia
     Dosage: 200 MILLIGRAM/SQ. METER, 43 DAYS BEFORE CAR-T INFUSION, RESUMED ON DAY 28 AFTER CAR-T INFUSION,
  2. SORAFENIB [Suspect]
     Active Substance: SORAFENIB
     Dosage: STARTED APPROXIMATELY 1 YEAR AFTER CD19-CAR T-CELL INFUSION, RE-INTRODUCED FOLLOWING BONE
  3. FLUDARABINE [Suspect]
     Active Substance: FLUDARABINE PHOSPHATE
     Indication: Product used for unknown indication
     Dosage: 5X30MG/M2
  4. KYMRIAH [Suspect]
     Active Substance: TISAGENLECLEUCEL
     Indication: Product used for unknown indication
     Dosage: 200 MILLIGRAM/SQ. METER
  5. TREOSULFAN [Suspect]
     Active Substance: TREOSULFAN
     Indication: Product used for unknown indication
     Dosage: 40 GRAM PER SQUARE METRE
  6. THIOTEPA [Suspect]
     Active Substance: THIOTEPA
     Indication: Product used for unknown indication
     Dosage: 10 MILLIGRAM/KILOGRAM
  7. THYMOCYTE IMMUNE GLOBULIN NOS [Suspect]
     Active Substance: THYMOCYTE IMMUNE GLOBULIN NOS
     Indication: Product used for unknown indication
     Dosage: 30 MILLIGRAM/KILOGRAM
  8. CYCLOSPORINE [Suspect]
     Active Substance: CYCLOSPORINE
     Indication: Prophylaxis against graft versus host disease
     Dosage: 42 GRAM PER SQUARE METRE
  9. METHOTREXATE [Suspect]
     Active Substance: METHOTREXATE
     Indication: Prophylaxis against graft versus host disease
     Dosage: UNK

REACTIONS (11)
  - Thrombocytopenia [Unknown]
  - Leukaemia recurrent [Recovered/Resolved]
  - Cytokine release syndrome [Recovered/Resolved]
  - B-cell aplasia [Recovered/Resolved]
  - Drug effective for unapproved indication [Not Recovered/Not Resolved]
  - Product use in unapproved indication [Not Recovered/Not Resolved]
  - Minimal residual disease [Recovered/Resolved]
  - Leukapheresis [Recovered/Resolved]
  - Therapy change [Recovered/Resolved]
  - Post-depletion B-cell recovery [Recovered/Resolved]
  - Off label use [Unknown]
